FAERS Safety Report 11122545 (Version 1)
Quarter: 2015Q2

REPORT INFORMATION
  Report Type: Spontaneous
  Country: US (occurrence: None)
  Receive Date: 20150518
  Receipt Date: 20150518
  Transmission Date: 20150821
  Serious: Yes (Other)
  Sender: FDA-Public Use
  Company Number: None

PATIENT
  Age: 73 Year
  Sex: Female
  Weight: 32.66 kg

DRUGS (10)
  1. CYMBALTA [Concomitant]
     Active Substance: DULOXETINE HYDROCHLORIDE
  2. AMLODIPINE [Concomitant]
     Active Substance: AMLODIPINE BESYLATE
  3. TOPIRAMATE. [Concomitant]
     Active Substance: TOPIRAMATE
  4. DIAZEPAM. [Concomitant]
     Active Substance: DIAZEPAM
  5. NAPROXEN. [Concomitant]
     Active Substance: NAPROXEN
  6. TRAZODON [Concomitant]
     Active Substance: TRAZODONE HYDROCHLORIDE
  7. LYRICA [Suspect]
     Active Substance: PREGABALIN
     Indication: INJURY
  8. LYRICA [Suspect]
     Active Substance: PREGABALIN
     Indication: BACK PAIN
  9. PROMETHAZINE [Concomitant]
     Active Substance: PROMETHAZINE\PROMETHAZINE HYDROCHLORIDE
  10. LYRICA [Concomitant]
     Active Substance: PREGABALIN

REACTIONS (6)
  - Tooth loss [None]
  - Gastrointestinal disorder [None]
  - Self-medication [None]
  - Dental caries [None]
  - Blood pressure abnormal [None]
  - Overdose [None]

NARRATIVE: CASE EVENT DATE: 20150516
